FAERS Safety Report 7334305-1 (Version None)
Quarter: 2011Q1

REPORT INFORMATION
  Report Type: 
  Country: None (occurrence: None)
  Receive Date: 20110307
  Receipt Date: 20110223
  Transmission Date: 20110831
  Serious: Yes (Other)
  Sender: FDA-Public Use
  Company Number: JP-JNJFOC-20110300057

PATIENT
  Age: 46 Year
  Sex: Female

DRUGS (2)
  1. ADRENOCORTICOTROPHIC HORMONE [Concomitant]
     Indication: PROPHYLAXIS
     Route: 065
  2. DOXIL [Suspect]
     Indication: PRODUCT USED FOR UNKNOWN INDICATION
     Dosage: ADMINISTRATION RATE WAS UNDER 1 MG/MIN
     Route: 042

REACTIONS (5)
  - ASTHMA [None]
  - FLUSHING [None]
  - DYSPNOEA [None]
  - FACE OEDEMA [None]
  - ERYTHEMA [None]
